FAERS Safety Report 21110583 (Version 1)
Quarter: 2022Q3

REPORT INFORMATION
  Report Type: Spontaneous
  Country: US (occurrence: None)
  Receive Date: 20220720
  Receipt Date: 20220720
  Transmission Date: 20221027
  Serious: Yes (Other)
  Sender: FDA-Public Use
  Company Number: None

PATIENT
  Age: 50 Year
  Sex: Male

DRUGS (4)
  1. PAXLOVID [Suspect]
     Active Substance: NIRMATRELVIR\RITONAVIR
     Indication: COVID-19
     Dates: start: 20220717, end: 20220719
  2. VITAMINS [Concomitant]
     Active Substance: VITAMINS
  3. ZINC [Concomitant]
     Active Substance: ZINC
  4. C [Concomitant]

REACTIONS (9)
  - Diarrhoea [None]
  - Gastric pH decreased [None]
  - Gastrointestinal pain [None]
  - Proctalgia [None]
  - Gastrointestinal pain [None]
  - Anorectal discomfort [None]
  - Rectal haemorrhage [None]
  - Anal inflammation [None]
  - Dysgeusia [None]

NARRATIVE: CASE EVENT DATE: 20220719
